FAERS Safety Report 13467711 (Version 1)
Quarter: 2017Q2

REPORT INFORMATION
  Report Type: Spontaneous
  Country: US (occurrence: US)
  Receive Date: 20170421
  Receipt Date: 20170421
  Transmission Date: 20170830
  Serious: No
  Sender: FDA-Public Use
  Company Number: US-PURDUE-USA-2016-0135647

PATIENT
  Age: 40 Year
  Sex: Female
  Weight: 83.9 kg

DRUGS (2)
  1. OXYCODONE HYDROCHLORIDE (SIMILAR TO NDA 22-272) [Suspect]
     Active Substance: OXYCODONE HYDROCHLORIDE
     Indication: PAIN
     Dosage: 15 MG (UP TO 15MG X 5 TABLETS), PRN
     Route: 048
     Dates: start: 201410
  2. NEURONTIN [Concomitant]
     Active Substance: GABAPENTIN
     Indication: NERVE INJURY
     Dosage: 800 MG, TID
     Route: 048
     Dates: start: 201410

REACTIONS (5)
  - Excoriation [Not Recovered/Not Resolved]
  - Inflammation [Unknown]
  - Thermal burn [Not Recovered/Not Resolved]
  - Drug ineffective [Unknown]
  - Pain [Unknown]

NARRATIVE: CASE EVENT DATE: 20161120
